FAERS Safety Report 5065512-9 (Version None)
Quarter: 2006Q3

REPORT INFORMATION
  Report Type: 
  Country: None (occurrence: None)
  Receive Date: 20060731
  Receipt Date: 20060713
  Transmission Date: 20061208
  Serious: Yes (Death)
  Sender: FDA-Public Use
  Company Number: JP-BRISTOL-MYERS SQUIBB COMPANY-13442272

PATIENT
  Age: 67 Year
  Sex: Male

DRUGS (8)
  1. TAXOL [Suspect]
     Indication: NON-SMALL CELL LUNG CANCER
     Route: 042
     Dates: start: 20040318, end: 20040318
  2. PARAPLATIN [Suspect]
     Indication: NON-SMALL CELL LUNG CANCER
     Route: 042
     Dates: start: 20040318, end: 20040318
  3. DEXAMETHASONE SODIUM PHOSPHATE [Concomitant]
     Route: 042
  4. GRANISETRON HCL [Concomitant]
     Route: 042
  5. FAMOTIDINE [Concomitant]
     Route: 042
  6. DIPHENHYDRAMINE HCL [Concomitant]
     Route: 048
     Dates: start: 20040318, end: 20040318
  7. CARBAZOCHROME SODIUM SULFONATE [Concomitant]
     Route: 048
  8. TRANEXAMIC ACID [Concomitant]
     Route: 048
     Dates: start: 20040317, end: 20040319

REACTIONS (2)
  - INTERSTITIAL LUNG DISEASE [None]
  - PYREXIA [None]
